FAERS Safety Report 5933625-2 (Version None)
Quarter: 2008Q4

REPORT INFORMATION
  Report Type: 
  Country: None (occurrence: None)
  Receive Date: 20081029
  Receipt Date: 20081020
  Transmission Date: 20090506
  Serious: Yes (Hospitalization)
  Sender: FDA-Public Use
  Company Number: NZ-JNJFOC-20081005303

PATIENT
  Sex: Male

DRUGS (3)
  1. RISPERIDONE [Suspect]
     Indication: DRUG USE FOR UNKNOWN INDICATION
     Dosage: AT NIGHT
     Route: 048
  2. HALDOL [Suspect]
     Route: 065
  3. HALDOL [Suspect]
     Indication: DRUG USE FOR UNKNOWN INDICATION
     Route: 065

REACTIONS (2)
  - AGGRESSION [None]
  - THINKING ABNORMAL [None]
